FAERS Safety Report 7785011-0 (Version None)
Quarter: 2011Q3

REPORT INFORMATION
  Report Type: 
  Country: None (occurrence: None)
  Receive Date: 20110929
  Receipt Date: 20110922
  Transmission Date: 20111222
  Serious: Yes (Hospitalization)
  Sender: FDA-Public Use
  Company Number: DE-BRISTOL-MYERS SQUIBB COMPANY-15755101

PATIENT
  Age: 65 Year
  Sex: Male
  Weight: 90 kg

DRUGS (2)
  1. IRINOTECAN HCL [Suspect]
     Indication: COLORECTAL CANCER METASTATIC
     Dosage: NO OF INF: 9 13OCT2010-02FEB2011 (112D)
     Route: 042
     Dates: start: 20101013
  2. CETUXIMAB [Suspect]
     Indication: COLORECTAL CANCER METASTATIC
     Dosage: NO OF INF: 18 13OCT2010-23FEB2011 (133D)
     Route: 042
     Dates: start: 20101013

REACTIONS (1)
  - ENTEROVESICAL FISTULA [None]
